FAERS Safety Report 18362076 (Version 1)
Quarter: 2020Q4

REPORT INFORMATION
  Report Type: Spontaneous
  Country: US (occurrence: US)
  Receive Date: 20201008
  Receipt Date: 20201008
  Transmission Date: 20210114
  Serious: No
  Sender: FDA-Public Use
  Company Number: US-ROMARKLABS-2020-US-000071

PATIENT
  Age: 55 Year
  Sex: Female

DRUGS (2)
  1. ARMOUR THYROID [Concomitant]
     Active Substance: THYROID, PORCINE
     Indication: THYROID DISORDER
  2. ALINIA [Suspect]
     Active Substance: NITAZOXANIDE
     Dosage: TAKE 1 TABLET TWICE DAILY
     Route: 048
     Dates: start: 20200303, end: 20200312

REACTIONS (3)
  - Chromaturia [Unknown]
  - Oral herpes [Unknown]
  - Rash papular [Unknown]

NARRATIVE: CASE EVENT DATE: 202003
